FAERS Safety Report 5023602-0 (Version None)
Quarter: 2006Q2

REPORT INFORMATION
  Report Type: 
  Country: None (occurrence: None)
  Receive Date: 20060606
  Receipt Date: 20060525
  Transmission Date: 20061013
  Serious: Yes (Life-Threatening)
  Sender: FDA-Public Use
  Company Number: HQWYE236125OCT05

PATIENT
  Age: 55 Year
  Sex: Female

DRUGS (11)
  1. MYLOTARG [Suspect]
     Indication: ACUTE MYELOID LEUKAEMIA
     Dosage: SEE IMAGE
     Route: 041
     Dates: start: 20050924, end: 20050924
  2. MYLOTARG [Suspect]
     Indication: ACUTE MYELOID LEUKAEMIA
     Dosage: SEE IMAGE
     Route: 041
     Dates: start: 20051008, end: 20051008
  3. CARBENIN (BETAMIPRON/PANIPENEM) [Concomitant]
  4. MAXIPIME [Concomitant]
  5. AMIKACIN SULFATE [Concomitant]
  6. PRODIF (FOSFLUCONAZOLE) [Concomitant]
  7. ANTITHROMBIN III [Concomitant]
  8. FOY (GABEXATE MESILATE) [Concomitant]
  9. FRAGMIN [Concomitant]
  10. FUNGUARD (MICAFUNGIN SODIUM) [Concomitant]
  11. ALBUMIN (HUMAN) [Concomitant]

REACTIONS (6)
  - BLOOD CREATININE INCREASED [None]
  - CONDITION AGGRAVATED [None]
  - DISEASE PROGRESSION [None]
  - DISSEMINATED INTRAVASCULAR COAGULATION [None]
  - PYREXIA [None]
  - VENOOCCLUSIVE LIVER DISEASE [None]
